FAERS Safety Report 5912180-7 (Version None)
Quarter: 2008Q4

REPORT INFORMATION
  Report Type: 
  Country: None (occurrence: None)
  Receive Date: 20081003
  Receipt Date: 20081003
  Transmission Date: 20090506
  Serious: Yes (Other)
  Sender: FDA-Public Use
  Company Number: None

PATIENT
  Age: 31 Year
  Sex: Female
  Weight: 55.3388 kg

DRUGS (1)
  1. CHANTIX [Suspect]
     Indication: SMOKING CESSATION THERAPY
     Dates: start: 20080920, end: 20080925

REACTIONS (16)
  - ABNORMAL BEHAVIOUR [None]
  - DEPRESSION [None]
  - DISTURBANCE IN ATTENTION [None]
  - DIZZINESS [None]
  - FATIGUE [None]
  - FEAR [None]
  - FEELING ABNORMAL [None]
  - FEELING OF BODY TEMPERATURE CHANGE [None]
  - HOT FLUSH [None]
  - IMPAIRED WORK ABILITY [None]
  - MALAISE [None]
  - MENTAL RETARDATION [None]
  - MOOD ALTERED [None]
  - MUSCULAR WEAKNESS [None]
  - PAIN [None]
  - TREMOR [None]
